FAERS Safety Report 9192552 (Version 1)
Quarter: 2013Q1

REPORT INFORMATION
  Report Type: Spontaneous
  Country: US (occurrence: None)
  Receive Date: 20120703
  Receipt Date: 20120703
  Transmission Date: 20140127
  Serious: No
  Sender: FDA-Public Use
  Company Number: PHEH2012US009286

PATIENT
  Age: 42 Year
  Sex: Male

DRUGS (5)
  1. GILENYA (FTY) CAPSULE, 0.5 MG [Suspect]
     Indication: MULTIPLE SCLEROSIS
     Route: 048
     Dates: start: 201112
  2. FAMPRIDINE (FAMPRIDINE) [Concomitant]
  3. GEODON (ZIPRASIDONE HYDROCHLORIDE) [Concomitant]
  4. DEPAKOTE (VALPROATE SEMI SODIUM) [Concomitant]
  5. ANTIHYPERTENSIVE DRUGS (NO INGREDIENTS/SUBSTANCES) [Concomitant]

REACTIONS (3)
  - Pain [None]
  - Depression [None]
  - Cough [None]
